FAERS Safety Report 7893794-4 (Version None)
Quarter: 2011Q4

REPORT INFORMATION
  Report Type: 
  Country: None (occurrence: None)
  Receive Date: 20111104
  Receipt Date: 20111031
  Transmission Date: 20120403
  Serious: Yes (Hospitalization, Other)
  Sender: FDA-Public Use
  Company Number: CA-ROCHE-1008291

PATIENT
  Sex: Female
  Weight: 56.296 kg

DRUGS (3)
  1. ONDANSETRON [Concomitant]
  2. XELODA [Suspect]
     Indication: COLORECTAL CANCER METASTATIC
     Route: 048
     Dates: start: 20111018, end: 20111023
  3. ATIVAN [Concomitant]

REACTIONS (3)
  - CHEST PAIN [None]
  - PAIN IN JAW [None]
  - CARDIOMYOPATHY [None]
